FAERS Safety Report 6047845-2 (Version None)
Quarter: 2009Q1

REPORT INFORMATION
  Report Type: 
  Country: None (occurrence: None)
  Receive Date: 20090123
  Receipt Date: 20090109
  Transmission Date: 20090719
  Serious: Yes (Hospitalization)
  Sender: FDA-Public Use
  Company Number: FR-PFIZER INC-2008053699

PATIENT

DRUGS (4)
  1. ALDACTONE [Suspect]
     Route: 048
     Dates: start: 19900101
  2. GLYBURIDE [Suspect]
     Route: 048
     Dates: start: 19960101
  3. ZOCOR [Suspect]
     Route: 048
     Dates: start: 20040101
  4. AMARYL [Suspect]
     Route: 048
     Dates: start: 19960101

REACTIONS (1)
  - PEMPHIGOID [None]
